FAERS Safety Report 6100373-8 (Version None)
Quarter: 2009Q1

REPORT INFORMATION
  Report Type: 
  Country: None (occurrence: None)
  Receive Date: 20090226
  Receipt Date: 20090217
  Transmission Date: 20090719
  Serious: Yes (Other)
  Sender: FDA-Public Use
  Company Number: 340008K09USA

PATIENT
  Sex: Female

DRUGS (2)
  1. OVIDREL [Suspect]
     Indication: INFERTILITY FEMALE
  2. GONAL-F [Suspect]
     Indication: INFERTILITY

REACTIONS (2)
  - ABORTION SPONTANEOUS [None]
  - DRUG EXPOSURE DURING PREGNANCY [None]
